FAERS Safety Report 12852116 (Version 1)
Quarter: 2016Q4

REPORT INFORMATION
  Report Type: Spontaneous
  Country: US (occurrence: US)
  Receive Date: 20161017
  Receipt Date: 20161017
  Transmission Date: 20170207
  Serious: Yes (Other)
  Sender: FDA-Public Use
  Company Number: US-BAYER-2016-197238

PATIENT
  Age: 30 Year
  Sex: Female

DRUGS (1)
  1. MIRENA [Suspect]
     Active Substance: LEVONORGESTREL
     Indication: CONTRACEPTION
     Dosage: 20 MCG/24HR, CONT
     Route: 015
     Dates: start: 201402, end: 20161006

REACTIONS (7)
  - Abdominal pain lower [None]
  - Procedural pain [Recovered/Resolved]
  - Vaginal haemorrhage [None]
  - Ovarian cyst [Recovered/Resolved]
  - Post procedural haemorrhage [Recovered/Resolved]
  - Fungal infection [Recovered/Resolved]
  - Bacterial vaginosis [Recovered/Resolved]

NARRATIVE: CASE EVENT DATE: 201610
